FAERS Safety Report 15841385 (Version 1)
Quarter: 2019Q1

REPORT INFORMATION
  Report Type: Report from Study
  Country: CA (occurrence: CA)
  Receive Date: 20190118
  Receipt Date: 20190118
  Transmission Date: 20190417
  Serious: No
  Sender: FDA-Public Use
  Company Number: CA-ROCHE-2248187

PATIENT
  Age: 34 Year
  Sex: Female

DRUGS (3)
  1. SALOFALK [Concomitant]
     Active Substance: MESALAMINE
     Indication: IRRITABLE BOWEL SYNDROME
     Dosage: SUPPOSITORY 1000 MG ;ONGOING: YES?PATIENT HAS BEEN TAKING MEDICATION SINCE LAST SPRING 2017 FOR IRRI
     Route: 048
  2. OCREVUS [Suspect]
     Active Substance: OCRELIZUMAB
     Indication: RELAPSING-REMITTING MULTIPLE SCLEROSIS
     Dosage: 300 MG AT DAY 0 AND 14, THEN 600 MG EVERY 6 MONTH ;ONGOING: YES
     Route: 042
     Dates: start: 20180823
  3. FLAGYL [Concomitant]
     Active Substance: METRONIDAZOLE\METRONIDAZOLE HYDROCHLORIDE
     Dosage: 500 MG X 6 DAYS ;ONGOING: NO?TO TREAT INFECTION AFTER THE ABCESS WAS DRAINED
     Route: 065

REACTIONS (3)
  - Abscess [Unknown]
  - Tremor [Unknown]
  - Fall [Unknown]

NARRATIVE: CASE EVENT DATE: 20181216
